FAERS Safety Report 6106692-3 (Version None)
Quarter: 2009Q1

REPORT INFORMATION
  Report Type: 
  Country: None (occurrence: None)
  Receive Date: 20090305
  Receipt Date: 20090219
  Transmission Date: 20090719
  Serious: Yes (Hospitalization)
  Sender: FDA-Public Use
  Company Number: 230338K09USA

PATIENT
  Age: 31 Year
  Sex: Female
  Weight: 76 kg

DRUGS (4)
  1. REBIF [Suspect]
     Indication: MULTIPLE SCLEROSIS
     Dosage: 44 MCG, 3 IN 1 WEEKS, SUBCUTANEOUS
     Route: 058
     Dates: start: 20070106
  2. SOLU-MEDROL [Concomitant]
  3. BIRTH CONTROL (ORAL CONTRACEPTIVE NOS) [Concomitant]
  4. DETROL [Concomitant]

REACTIONS (2)
  - POLLAKIURIA [None]
  - UTERINE LEIOMYOMA [None]
